FAERS Safety Report 11302289 (Version 1)
Quarter: 2015Q3

REPORT INFORMATION
  Report Type: Spontaneous
  Country: MX (occurrence: MX)
  Receive Date: 20150723
  Receipt Date: 20150723
  Transmission Date: 20151125
  Serious: Yes (Other)
  Sender: FDA-Public Use
  Company Number: PHHY2015MX087287

PATIENT
  Age: 36 Year
  Sex: Male
  Weight: 198 kg

DRUGS (2)
  1. SANDOSTATIN LAR DEPOT [Suspect]
     Active Substance: OCTREOTIDE ACETATE
     Dosage: 40 MG, QMO
     Route: 065
     Dates: start: 200904
  2. SANDOSTATIN LAR DEPOT [Suspect]
     Active Substance: OCTREOTIDE ACETATE
     Indication: ACROMEGALY
     Dosage: 20 MG, QMO
     Route: 065
     Dates: start: 200310

REACTIONS (17)
  - Quality of life decreased [Unknown]
  - Optic atrophy [Not Recovered/Not Resolved]
  - High density lipoprotein decreased [Unknown]
  - Concomitant disease aggravated [Not Recovered/Not Resolved]
  - Obesity [Recovered/Resolved]
  - Dyslipidaemia [Not Recovered/Not Resolved]
  - Cognitive disorder [Not Recovered/Not Resolved]
  - Hypopituitarism [Not Recovered/Not Resolved]
  - Amaurosis [Not Recovered/Not Resolved]
  - Quadranopia [Not Recovered/Not Resolved]
  - Visual acuity reduced [Unknown]
  - Hyperventilation [Not Recovered/Not Resolved]
  - Body mass index increased [Unknown]
  - Blood triglycerides increased [Unknown]
  - Off label use [Unknown]
  - Chiasma syndrome [Not Recovered/Not Resolved]
  - Visual impairment [Unknown]
